FAERS Safety Report 10265222 (Version 1)
Quarter: 2014Q2

REPORT INFORMATION
  Report Type: Spontaneous
  Country: IR (occurrence: IR)
  Receive Date: 20140627
  Receipt Date: 20140627
  Transmission Date: 20141212
  Serious: Yes (Other)
  Sender: FDA-Public Use
  Company Number: IR-WATSON-2014-13435

PATIENT
  Age: 17 Year
  Sex: Male

DRUGS (1)
  1. DIMENHYDRINATE (UNKNOWN) [Suspect]
     Indication: MOTION SICKNESS
     Dosage: UNK, EVERY TIME HE WAS GOING ON A TRIP TO OTHER CITIES
     Route: 065

REACTIONS (2)
  - Stevens-Johnson syndrome [Recovered/Resolved]
  - Urticaria [Recovered/Resolved]
